FAERS Safety Report 7474906-3 (Version None)
Quarter: 2011Q2

REPORT INFORMATION
  Report Type: 
  Country: None (occurrence: None)
  Receive Date: 20110505
  Receipt Date: 20110411
  Transmission Date: 20111010
  Serious: Yes (Hospitalization)
  Sender: FDA-Public Use
  Company Number: TOR 2011-0020

PATIENT
  Age: 49 Year
  Sex: Female

DRUGS (7)
  1. LEUPROLIDE ACETATE [Suspect]
     Indication: BREAST CANCER
     Dosage: 11.25 MG 1 ON 4 MONTHS
     Route: 058
     Dates: start: 20090219, end: 20100414
  2. TAXOL [Concomitant]
  3. CYCLOPHOSPHAMIDE [Concomitant]
  4. DOCETAXEL HYDRATE [Concomitant]
  5. FARESTON [Suspect]
     Indication: BREAST CANCER
     Dosage: 120 MG (40 MG,3 IN 1 D)
     Dates: start: 20090413, end: 20100609
  6. MAGMITT [Concomitant]
  7. ZOMETA [Suspect]
     Indication: BREAST CANCER
     Dosage: 4 MG 1 IN 1 MONTH
     Route: 041
     Dates: end: 20100609

REACTIONS (1)
  - INTERSTITIAL LUNG DISEASE [None]
